FAERS Safety Report 9248422 (Version 1)
Quarter: 2013Q2

REPORT INFORMATION
  Report Type: Spontaneous
  Country: IN (occurrence: IN)
  Receive Date: 20130423
  Receipt Date: 20130423
  Transmission Date: 20140414
  Serious: Yes (Other)
  Sender: FDA-Public Use
  Company Number: IN-PFIZER INC-2013120886

PATIENT
  Age: 7 Year
  Sex: Female

DRUGS (6)
  1. CLOPIDOGREL [Suspect]
     Indication: THROMBOSIS
     Dosage: UNK
     Route: 048
  2. METHOTREXATE SODIUM [Suspect]
     Indication: MORPHOEA
     Dosage: 7.5 MG, WEEKLY
  3. METHYLPREDNISOLONE ACETATE [Suspect]
     Dosage: 15 MG/KG
     Route: 042
  4. HEPARIN [Suspect]
     Indication: THROMBOSIS
     Dosage: UNK
  5. ASPIRIN [Suspect]
     Indication: THROMBOSIS
     Dosage: UNK
     Route: 048
  6. WARFARIN [Suspect]
     Indication: THROMBOSIS
     Dosage: UNK
     Route: 048

REACTIONS (5)
  - Thrombosis [Unknown]
  - Ulcer [Unknown]
  - Alopecia [Unknown]
  - Skin plaque [Unknown]
  - Drug ineffective [Unknown]
